FAERS Safety Report 6110420-5 (Version None)
Quarter: 2009Q1

REPORT INFORMATION
  Report Type: 
  Country: None (occurrence: None)
  Receive Date: 20090310
  Receipt Date: 20090225
  Transmission Date: 20090719
  Serious: Yes (Death)
  Sender: FDA-Public Use
  Company Number: ES-GENENTECH-272576

PATIENT
  Sex: Male

DRUGS (7)
  1. TRASTUZUMAB [Suspect]
     Indication: TRANSITIONAL CELL CARCINOMA
     Dosage: 248 MG, 1/WEEK
     Route: 042
     Dates: start: 20081119
  2. GEMCITABINE HCL [Suspect]
     Indication: TRANSITIONAL CELL CARCINOMA
     Dosage: 1670 MG, UNK
     Route: 042
  3. CISPLATIN [Suspect]
     Indication: TRANSITIONAL CELL CARCINOMA
     Dosage: 125.5 MG, Q4W
     Route: 042
  4. OXYCODONE HCL [Concomitant]
     Indication: SUPERINFECTION
     Dosage: UNK
     Dates: start: 20081113, end: 20081121
  5. IPRATROPIUM BROMIDE [Concomitant]
     Indication: SUPERINFECTION
     Dosage: UNK
     Dates: start: 20081107, end: 20081121
  6. SALBUTAMOL [Concomitant]
     Indication: SUPERINFECTION
     Dosage: UNK
     Dates: start: 20081107, end: 20081121
  7. PREGABALIN [Concomitant]
     Indication: SUPERINFECTION
     Dosage: UNK
     Dates: start: 20081107, end: 20081121

REACTIONS (1)
  - PULMONARY EMBOLISM [None]
